FAERS Safety Report 8298982-3 (Version None)
Quarter: 2012Q2

REPORT INFORMATION
  Report Type: 
  Country: None (occurrence: None)
  Receive Date: 20120419
  Receipt Date: 20120410
  Transmission Date: 20120825
  Serious: No
  Sender: FDA-Public Use
  Company Number: US-BAYER-2012-036107

PATIENT
  Age: 53 Year
  Sex: Female
  Weight: 44 kg

DRUGS (2)
  1. NAPROXEN (ALEVE) [Suspect]
     Indication: ARTHRITIS
     Dosage: 2, AS NEEDED
     Dates: start: 20120401
  2. ALEVE (CAPLET) [Suspect]
     Indication: ARTHRITIS
     Dosage: UNK
     Route: 048
     Dates: start: 20120401

REACTIONS (1)
  - ARTHRALGIA [None]
